FAERS Safety Report 10369192 (Version 1)
Quarter: 2014Q1

REPORT INFORMATION
  Report Type: Spontaneous
  Country: US (occurrence: None)
  Receive Date: 20140306
  Receipt Date: 20140306
  Transmission Date: 20141002
  Serious: Yes (Other)
  Sender: FDA-Public Use
  Company Number: 163-21880-13091554

PATIENT
  Age: 79 Year
  Sex: Female

DRUGS (7)
  1. REVLIMID (LENALIDOMIDE) (10 MILLIGRAM, CAPSULES) [Suspect]
     Indication: PLASMA CELL MYELOMA
     Dosage: 10 MG, 1 IN 1,  D,  PO 05/02/2012 - UNKNOWN THERAPY DATES
     Route: 048
     Dates: start: 20120502
  2. AMLODIPIN BESYLATE [Concomitant]
  3. COUMADIN (WARFARIN SODIUM) [Concomitant]
  4. ACYCLOVIR (ACICLOVIR) (ACICLOVIR) [Concomitant]
  5. OMEPRAZOLE [Concomitant]
  6. LEVOTHYROXINE [Concomitant]
  7. DEXAMETHASONE [Concomitant]

REACTIONS (1)
  - Deep vein thrombosis [None]
